FAERS Safety Report 15901145 (Version 2)
Quarter: 2019Q1

REPORT INFORMATION
  Report Type: Spontaneous
  Country: JP (occurrence: JP)
  Receive Date: 20190201
  Receipt Date: 20190314
  Transmission Date: 20190417
  Serious: Yes (Other)
  Sender: FDA-Public Use
  Company Number: PHJP2017JP036967

PATIENT
  Age: 66 Year
  Sex: Male

DRUGS (1)
  1. AFINITOR [Suspect]
     Active Substance: EVEROLIMUS
     Indication: MIXED ADENONEUROENDOCRINE CARCINOMA
     Dosage: 10 MG, QD
     Route: 048

REACTIONS (1)
  - Neuropathy peripheral [Recovered/Resolved]
